FAERS Safety Report 11115193 (Version 1)
Quarter: 2015Q2

REPORT INFORMATION
  Report Type: Spontaneous
  Country: GB (occurrence: GB)
  Receive Date: 20150515
  Receipt Date: 20150515
  Transmission Date: 20150821
  Serious: Yes (Other)
  Sender: FDA-Public Use
  Company Number: GB-CIPLA LTD.-2015GB03814

PATIENT

DRUGS (29)
  1. CHOLECALCIFEROL CONCENTRATE (POWDER FORM) [Concomitant]
  2. SENNA [Concomitant]
     Active Substance: SENNA LEAF\SENNOSIDES\SENNOSIDES A AND B
  3. BUDESONIDE. [Concomitant]
     Active Substance: BUDESONIDE
  4. PROPRANOLOL [Concomitant]
     Active Substance: PROPRANOLOL\PROPRANOLOL HYDROCHLORIDE
  5. FLUTICASONE PROPIONATE MICRONISED [Concomitant]
  6. BUPRENORPHINE HYDROCHLORIDE. [Concomitant]
     Active Substance: BUPRENORPHINE HYDROCHLORIDE
  7. OMEPRAZOL [Concomitant]
     Active Substance: OMEPRAZOLE
  8. SODIUM DOCUSATE [Concomitant]
     Active Substance: DOCUSATE SODIUM
  9. RAMIPRIL. [Suspect]
     Active Substance: RAMIPRIL
     Indication: RENAL DISORDER
     Dosage: 2.5 MG
     Route: 048
     Dates: start: 20150423, end: 20150428
  10. ALVERINE CITRATE [Concomitant]
     Active Substance: ALVERINE CITRATE
  11. MIRTAZAPINE. [Concomitant]
     Active Substance: MIRTAZAPINE
  12. PREGABALIN. [Concomitant]
     Active Substance: PREGABALIN
  13. SALBUTAMOL SULPHATE MICRONISED [Concomitant]
  14. AMITRIPTYLINE [Concomitant]
     Active Substance: AMITRIPTYLINE
  15. ASCORBIC ACID. [Concomitant]
     Active Substance: ASCORBIC ACID
  16. DIAZEPAM. [Concomitant]
     Active Substance: DIAZEPAM
  17. FUROSEMIDE. [Concomitant]
     Active Substance: FUROSEMIDE
  18. INSULIN LISPRO [Concomitant]
     Active Substance: INSULIN LISPRO
  19. ZOPICLONE [Concomitant]
     Active Substance: ZOPICLONE
  20. METFORMIN [Concomitant]
     Active Substance: METFORMIN HYDROCHLORIDE
  21. OXYCODONE [Concomitant]
     Active Substance: OXYCODONE
  22. PARACETAMOL [Concomitant]
     Active Substance: ACETAMINOPHEN
  23. QUININE SULPHATE [Concomitant]
     Active Substance: QUININE SULFATE
  24. SOLIFENACIN [Concomitant]
     Active Substance: SOLIFENACIN
  25. MONTELUKAST [Concomitant]
     Active Substance: MONTELUKAST SODIUM
  26. SIMVASTIN [Concomitant]
     Active Substance: SIMVASTATIN
  27. BETAHISTINE [Concomitant]
     Active Substance: BETAHISTINE
  28. INSULIN PORCINE HIGHLY PURIFIED [Concomitant]
  29. MEBEVERINE [Concomitant]
     Active Substance: MEBEVERINE

REACTIONS (4)
  - Rash papular [Not Recovered/Not Resolved]
  - Peripheral swelling [Not Recovered/Not Resolved]
  - Pain [Not Recovered/Not Resolved]
  - Pruritus [Not Recovered/Not Resolved]

NARRATIVE: CASE EVENT DATE: 20150425
